FAERS Safety Report 10612629 (Version 2)
Quarter: 2014Q4

REPORT INFORMATION
  Report Type: Spontaneous
  Country: SE (occurrence: SE)
  Receive Date: 20141127
  Receipt Date: 20141203
  Transmission Date: 20150529
  Serious: Yes (Other)
  Sender: FDA-Public Use
  Company Number: SE-AMGEN-SWESP2014090856

PATIENT
  Age: 67 Year
  Sex: Male

DRUGS (5)
  1. TROMBYL [Concomitant]
     Active Substance: ASPIRIN
  2. LEVAXIN [Concomitant]
     Active Substance: LEVOTHYROXINE SODIUM
  3. KALCIPOS [Concomitant]
     Active Substance: CALCIUM CARBONATE
  4. XGEVA [Suspect]
     Active Substance: DENOSUMAB
     Indication: PROSTATE CANCER METASTATIC
     Dosage: 120 MG, 1 IN 2 ONCE
     Route: 065
     Dates: start: 20140211
  5. TAXOTERE [Suspect]
     Active Substance: DOCETAXEL
     Indication: PROSTATE CANCER METASTATIC
     Dosage: UNK
     Route: 065
     Dates: start: 20140121

REACTIONS (1)
  - Dyspnoea [Not Recovered/Not Resolved]
